FAERS Safety Report 5951739-8 (Version None)
Quarter: 2008Q4

REPORT INFORMATION
  Report Type: 
  Country: None (occurrence: None)
  Receive Date: 20081113
  Receipt Date: 20081105
  Transmission Date: 20090506
  Serious: Yes (Other)
  Sender: FDA-Public Use
  Company Number: GB-MERCK-0811GBR00018

PATIENT
  Age: 72 Year
  Sex: Female

DRUGS (8)
  1. ZOCOR [Suspect]
     Indication: BLOOD CHOLESTEROL INCREASED
     Route: 048
     Dates: start: 20060101, end: 20081023
  2. ALLOPURINOL [Suspect]
     Indication: GOUT
     Route: 048
     Dates: start: 20081006, end: 20081023
  3. BISOPROLOL [Concomitant]
     Indication: ANGINA PECTORIS
     Route: 065
  4. BISOPROLOL [Concomitant]
     Indication: HYPERTENSION
     Route: 065
  5. VASOTEC [Concomitant]
     Indication: HYPERTENSION
     Route: 048
  6. ZETIA [Concomitant]
     Indication: BLOOD CHOLESTEROL INCREASED
     Route: 048
  7. INSULIN [Concomitant]
     Indication: DIABETES MELLITUS
     Route: 058
  8. ISOSORBIDE MONONITRATE [Concomitant]
     Indication: ANGINA PECTORIS
     Route: 048

REACTIONS (2)
  - DRUG INTERACTION [None]
  - RHABDOMYOLYSIS [None]
